FAERS Safety Report 7060199-8 (Version None)
Quarter: 2010Q4

REPORT INFORMATION
  Report Type: 
  Country: None (occurrence: None)
  Receive Date: 20101025
  Receipt Date: 20101020
  Transmission Date: 20110411
  Serious: Yes (Life-Threatening, Hospitalization)
  Sender: FDA-Public Use
  Company Number: US-GILEAD-2010-0032268

PATIENT
  Sex: Female
  Weight: 143.01 kg

DRUGS (20)
  1. LETAIRIS [Suspect]
     Indication: PULMONARY ARTERIAL HYPERTENSION
     Route: 048
     Dates: start: 20100714
  2. OXYGEN [Concomitant]
  3. ASPIRIN [Concomitant]
  4. LASIX [Concomitant]
  5. ALDACTONE [Concomitant]
  6. HYDROXYZINE [Concomitant]
  7. LOPRESSOR [Concomitant]
  8. AMIODARONE HCL [Concomitant]
  9. SIMVASTATIN [Concomitant]
  10. CLONAZEPAM [Concomitant]
  11. LEVOTHYROXINE [Concomitant]
  12. BENICAR [Concomitant]
  13. FERROUS SULFATE [Concomitant]
  14. GLUCOTROL [Concomitant]
  15. BUSPIRONE HCL [Concomitant]
  16. CAPTOPRIL [Concomitant]
  17. METFORMIN [Concomitant]
  18. AMITRIPTYLINE HCL [Concomitant]
  19. MIRAPEX [Concomitant]
  20. LEXAPRO [Concomitant]

REACTIONS (1)
  - RESPIRATORY FAILURE [None]
